FAERS Safety Report 4462339-3 (Version None)
Quarter: 2004Q3

REPORT INFORMATION
  Report Type: 
  Country: None (occurrence: None)
  Receive Date: 20040924
  Receipt Date: 20040908
  Transmission Date: 20050211
  Serious: Yes (Life-Threatening)
  Sender: FDA-Public Use
  Company Number: PIR 0409022

PATIENT
  Age: 16 Year
  Sex: Male
  Weight: 61 kg

DRUGS (3)
  1. DEXTROSE 70% [Suspect]
     Indication: NUTRITIONAL SUPPORT
  2. DEXTROSE 70% [Suspect]
  3. DEXTROSE 70% [Suspect]

REACTIONS (3)
  - DRY THROAT [None]
  - RESPIRATORY DISORDER [None]
  - URTICARIA [None]
